FAERS Safety Report 17451286 (Version 6)
Quarter: 2020Q2

REPORT INFORMATION
  Report Type: Spontaneous
  Country: US (occurrence: US)
  Receive Date: 20200224
  Receipt Date: 20200407
  Transmission Date: 20200713
  Serious: No
  Sender: FDA-Public Use
  Company Number: US-SA-2020SA045455

PATIENT
  Age: 72 Year
  Sex: Female

DRUGS (1)
  1. LANTUS SOLOSTAR [Suspect]
     Active Substance: INSULIN GLARGINE
     Indication: TYPE 2 DIABETES MELLITUS
     Dosage: 17 IU, QD
     Route: 065

REACTIONS (6)
  - Injection site pain [Unknown]
  - Device breakage [Unknown]
  - Device operational issue [Unknown]
  - Product storage error [Unknown]
  - Blood glucose increased [Unknown]
  - Incorrect dose administered by device [Unknown]
